FAERS Safety Report 25004502 (Version 6)
Quarter: 2025Q3

REPORT INFORMATION
  Report Type: Spontaneous
  Country: EU (occurrence: EU)
  Receive Date: 20250224
  Receipt Date: 20250909
  Transmission Date: 20251020
  Serious: Yes (Other)
  Sender: NOVARTIS
  Company Number: EU-SANDOZ-SDZ2025DE009543

PATIENT
  Age: 69 Year
  Sex: Female

DRUGS (4)
  1. VALSARTAN [Suspect]
     Active Substance: VALSARTAN
     Indication: Cerebrovascular accident
     Route: 065
     Dates: start: 201807
  2. VALSARTAN [Suspect]
     Active Substance: VALSARTAN
     Dosage: 80 MG, QD
     Route: 065
  3. SIMVASTATIN [Concomitant]
     Active Substance: SIMVASTATIN
     Indication: Product used for unknown indication
     Dosage: 40 MG, QD
     Route: 065
  4. ELIQUIS [Concomitant]
     Active Substance: APIXABAN
     Indication: Product used for unknown indication
     Dosage: 10 MG, QD (5 MG, BID)
     Route: 065
     Dates: start: 20180726

REACTIONS (6)
  - Metastases to lung [Unknown]
  - Metastases to bone [Unknown]
  - Renal neoplasm [Unknown]
  - Hemiplegia [Unknown]
  - Poor quality product administered [Unknown]
  - Product contamination [Unknown]

NARRATIVE: CASE EVENT DATE: 20180701
